FAERS Safety Report 4555061-6 (Version None)
Quarter: 2005Q1

REPORT INFORMATION
  Report Type: 
  Country: None (occurrence: None)
  Receive Date: 20041228
  Receipt Date: 20041005
  Transmission Date: 20050727
  Serious: Yes (Other)
  Sender: FDA-Public Use
  Company Number: PHEH2004US09701

PATIENT
  Age: 78 Year
  Sex: Male

DRUGS (16)
  1. AREDIA [Suspect]
     Indication: BONE DENSITY DECREASED
     Dosage: SEE IMAGE
     Dates: start: 19990101, end: 20020201
  2. AREDIA [Suspect]
     Indication: BONE DENSITY DECREASED
     Dosage: SEE IMAGE
     Dates: start: 20031201
  3. WARFARIN (WARFARIN) [Concomitant]
  4. AVODART [Concomitant]
  5. GM-CSF (GRANULOCYTE MACROPHAGE COLONY STIM FACTOR) [Concomitant]
  6. INTRON A [Concomitant]
  7. RETINOL [Concomitant]
  8. PREVACID [Concomitant]
  9. VASOTEC [Concomitant]
  10. NEURONTIN [Concomitant]
  11. LIPITOR [Concomitant]
  12. FUROSEMIDE [Concomitant]
  13. ALDACE [Concomitant]
  14. FOLTX (PYRIDOXINE) [Concomitant]
  15. XANAX [Concomitant]
  16. ACCUTANE [Concomitant]

REACTIONS (6)
  - ENDODONTIC PROCEDURE [None]
  - IMPAIRED HEALING [None]
  - OSTEONECROSIS [None]
  - SINUS DISORDER [None]
  - TOOTH ABSCESS [None]
  - TOOTH EXTRACTION [None]
